FAERS Safety Report 5332948-8 (Version None)
Quarter: 2007Q1

REPORT INFORMATION
  Report Type: 
  Country: None (occurrence: None)
  Receive Date: 20070306
  Receipt Date: 20060802
  Transmission Date: 20070707
  Serious: Yes (Hospitalization)
  Sender: FDA-Public Use
  Company Number: A03200604875

PATIENT
  Age: 59 Year
  Sex: Female

DRUGS (7)
  1. PLAVIX [Suspect]
     Indication: CORONARY ARTERY DISEASE
     Dosage: 75 MG QD - ORAL
     Route: 048
     Dates: end: 20060101
  2. ACETYLSALICYLIC ACID SRT [Concomitant]
  3. LOVASTATIN [Concomitant]
  4. METOPROLOL SUCCINATE [Concomitant]
  5. ALBUTEROL [Concomitant]
  6. PHENYTOIN SODIUM [Concomitant]
  7. LISINOPRIL [Concomitant]

REACTIONS (2)
  - HAEMORRHAGIC STROKE [None]
  - HEADACHE [None]
